FAERS Safety Report 4269679-1 (Version None)
Quarter: 2004Q1

REPORT INFORMATION
  Report Type: 
  Country: None (occurrence: None)
  Receive Date: 20040112
  Receipt Date: 20040107
  Transmission Date: 20041129
  Serious: Yes (Hospitalization)
  Sender: FDA-Public Use
  Company Number: US-JNJFOC-20040101055

PATIENT
  Age: 55 Year
  Sex: Male

DRUGS (3)
  1. ULTRAM [Suspect]
     Indication: BACK PAIN
  2. BLOOD PRESSURE DRUG (ANTIHYPERTENSIVES) [Concomitant]
  3. OVER COUNTER PAIN KILLER (ANALGESICS) [Concomitant]

REACTIONS (5)
  - CARDIAC DISORDER [None]
  - LOSS OF CONSCIOUSNESS [None]
  - POLYTRAUMATISM [None]
  - ROAD TRAFFIC ACCIDENT [None]
  - SUICIDE ATTEMPT [None]
